FAERS Safety Report 19376811 (Version 19)
Quarter: 2023Q1

REPORT INFORMATION
  Report Type: Report from Study
  Country: CA (occurrence: CA)
  Receive Date: 20210604
  Receipt Date: 20230331
  Transmission Date: 20230418
  Serious: Yes (Other)
  Sender: FDA-Public Use
  Company Number: CA-PFIZER INC-2021630537

PATIENT
  Age: 43 Year
  Sex: Female

DRUGS (118)
  1. PANTOPRAZOLE [Suspect]
     Active Substance: PANTOPRAZOLE
     Dosage: 2 DOSAGE FORM, QD
     Route: 065
  2. PANTOPRAZOLE [Suspect]
     Active Substance: PANTOPRAZOLE
     Dosage: 2 DOSAGE FORM, QD
     Route: 065
  3. PANTOPRAZOLE [Suspect]
     Active Substance: PANTOPRAZOLE
     Dosage: 3 DOSAGE FORM
     Route: 065
  4. PANTOPRAZOLE [Suspect]
     Active Substance: PANTOPRAZOLE
     Dosage: 2 DOSAGE FORM, QD
     Route: 065
  5. PANTOPRAZOLE [Suspect]
     Active Substance: PANTOPRAZOLE
     Dosage: 2 DOSAGE FORM, QD
     Route: 065
  6. PANTOPRAZOLE [Suspect]
     Active Substance: PANTOPRAZOLE
     Dosage: 3 DOSAGE FORM
     Route: 065
  7. HYDROMORPHONE HYDROCHLORIDE [Suspect]
     Active Substance: HYDROMORPHONE HYDROCHLORIDE
     Dosage: 1 DOSAGE FORM, Q12H
     Route: 065
  8. HYDROMORPHONE HYDROCHLORIDE [Suspect]
     Active Substance: HYDROMORPHONE HYDROCHLORIDE
     Dosage: 1 DOSAGE FORM
     Route: 065
  9. HYDROCORTISONE [Suspect]
     Active Substance: HYDROCORTISONE
     Dosage: UNK, Q12H
     Route: 065
  10. HYDROCORTISONE [Suspect]
     Active Substance: HYDROCORTISONE
     Dosage: 25 MILLIGRAM, QD
     Route: 065
  11. CYANOCOBALAMIN [Suspect]
     Active Substance: CYANOCOBALAMIN
     Dosage: UNK
     Route: 065
  12. CANDESARTAN CILEXETIL [Suspect]
     Active Substance: CANDESARTAN CILEXETIL
     Indication: Migraine
     Dosage: UNK
     Route: 048
  13. CALCIUM [Suspect]
     Active Substance: CALCIUM
     Dosage: UNK
     Route: 065
  14. STRATTERA [Suspect]
     Active Substance: ATOMOXETINE HYDROCHLORIDE
     Indication: Migraine
     Dosage: 3 DOSAGE FORM
     Route: 065
  15. AIMOVIG [Suspect]
     Active Substance: ERENUMAB-AOOE
     Indication: Migraine
     Dosage: SOLUTION (EXCEPT SYRUP)
     Route: 065
  16. AIMOVIG [Suspect]
     Active Substance: ERENUMAB-AOOE
     Dosage: UNK
     Route: 065
  17. FLUTICASONE FUROATE [Suspect]
     Active Substance: FLUTICASONE FUROATE
     Dosage: 1 DOSAGE FORM, QD (FORMULATION: SPRAY (EXCEPT INHALATION))
     Route: 065
  18. FLUTICASONE FUROATE [Suspect]
     Active Substance: FLUTICASONE FUROATE
     Dosage: UNK (SPRAY (EXCEPT INHALATION))
     Route: 065
  19. BETAMETHASONE VALERATE [Suspect]
     Active Substance: BETAMETHASONE VALERATE
     Dosage: 1 DOSAGE FORM, QOD
     Route: 065
  20. BETAMETHASONE VALERATE [Suspect]
     Active Substance: BETAMETHASONE VALERATE
     Dosage: UNK
     Route: 065
  21. BOTULINUM TOXIN TYPE A [Suspect]
     Active Substance: BOTULINUM TOXIN TYPE A
     Dosage: UNK
     Route: 065
  22. BUTRANS [Suspect]
     Active Substance: BUPRENORPHINE
     Dosage: UNK, PATCH
     Route: 065
  23. CYCLOBENZAPRINE [Suspect]
     Active Substance: CYCLOBENZAPRINE
     Dosage: 1 DOSAGE FORM, QOD
     Route: 065
  24. CYCLOBENZAPRINE [Suspect]
     Active Substance: CYCLOBENZAPRINE
     Dosage: 1 DOSAGE FORM, QD
     Route: 065
  25. DOMPERIDONE [Suspect]
     Active Substance: DOMPERIDONE
     Dosage: UNK, Q72H
     Route: 065
  26. DOMPERIDONE [Suspect]
     Active Substance: DOMPERIDONE
     Dosage: 1 DOSAGE FORM, QD
     Route: 065
  27. FETZIMA [Suspect]
     Active Substance: LEVOMILNACIPRAN HYDROCHLORIDE
     Dosage: 1 DOSAGE FORM, QOD
     Route: 065
  28. FETZIMA [Suspect]
     Active Substance: LEVOMILNACIPRAN HYDROCHLORIDE
     Dosage: 1 DOSAGE FORM, QD
     Route: 065
  29. FINACEA [Suspect]
     Active Substance: AZELAIC ACID
     Dosage: 1 DOSAGE FORM, QOD
     Route: 065
  30. FINACEA [Suspect]
     Active Substance: AZELAIC ACID
     Dosage: UNK
     Route: 065
  31. HYDROMORPHONE [Suspect]
     Active Substance: HYDROMORPHONE
     Dosage: 2 DOSAGE FORM, Q12H
     Route: 065
  32. HYDROMORPHONE [Suspect]
     Active Substance: HYDROMORPHONE
     Dosage: 1 DOSAGE FORM, QOD
     Route: 065
  33. HYDROMORPHONE [Suspect]
     Active Substance: HYDROMORPHONE
     Dosage: 1 DOSAGE FORM
     Route: 065
  34. LAMICTAL [Suspect]
     Active Substance: LAMOTRIGINE
     Dosage: 25 MILLIGRAM
     Route: 048
  35. LAMICTAL [Suspect]
     Active Substance: LAMOTRIGINE
     Dosage: 50 MILLIGRAM
     Route: 048
  36. LAMICTAL [Suspect]
     Active Substance: LAMOTRIGINE
     Dosage: 50 MILLIGRAM, Q12H
     Route: 048
  37. LAMICTAL [Suspect]
     Active Substance: LAMOTRIGINE
     Dosage: 25.0 MILLIGRAM, Q12H
     Route: 048
  38. LAMICTAL [Suspect]
     Active Substance: LAMOTRIGINE
     Dosage: 50 MILLIGRAM, QOD
     Route: 048
  39. LAMICTAL [Suspect]
     Active Substance: LAMOTRIGINE
     Dosage: 25 MILLIGRAM, QOD
     Route: 048
  40. LAMICTAL [Suspect]
     Active Substance: LAMOTRIGINE
     Dosage: 1 DOSAGE FORM, QOD
  41. VITAMINS [Suspect]
     Active Substance: VITAMINS
     Dosage: 1 DOSAGE FORM
     Route: 065
  42. VITAMINS [Suspect]
     Active Substance: VITAMINS
     Dosage: UNK
     Route: 065
  43. MYRBETRIQ [Suspect]
     Active Substance: MIRABEGRON
     Indication: Migraine
     Dosage: 1 DOSAGE FORM, QOD
     Route: 048
  44. MYRBETRIQ [Suspect]
     Active Substance: MIRABEGRON
     Dosage: 1 DOSAGE FORM, QD
     Route: 065
  45. NAPROXEN [Suspect]
     Active Substance: NAPROXEN
     Dosage: 2 DOSAGE FORM, Q12H
     Route: 065
  46. NAPROXEN [Suspect]
     Active Substance: NAPROXEN
     Dosage: 1 DOSAGE FORM, QOD
     Route: 065
  47. NAPROXEN [Suspect]
     Active Substance: NAPROXEN
     Dosage: 1 DOSAGE FORM, Q12H
     Route: 065
  48. NAPROXEN [Suspect]
     Active Substance: NAPROXEN
     Dosage: 1 DOSAGE FORM
     Route: 065
  49. CETIRIZINE HYDROCHLORIDE [Suspect]
     Active Substance: CETIRIZINE HYDROCHLORIDE
     Dosage: UNK
     Route: 065
  50. TOPAMAX [Suspect]
     Active Substance: TOPIRAMATE
     Dosage: 25 MILLIGRAM, QD
     Route: 065
  51. TOPICORT [Suspect]
     Active Substance: DESOXIMETASONE
     Dosage: 1 DOSAGE FORM, Q12H
     Route: 065
  52. TOPICORT [Suspect]
     Active Substance: DESOXIMETASONE
     Dosage: 25 MILLIGRAM, BID
     Route: 065
  53. TOPICORT [Suspect]
     Active Substance: DESOXIMETASONE
     Dosage: 3 MILLIGRAM, Q1HR
     Route: 065
  54. TOPICORT [Suspect]
     Active Substance: DESOXIMETASONE
     Dosage: 3 MILLIGRAM, QD
     Route: 065
  55. TOPICORT [Suspect]
     Active Substance: DESOXIMETASONE
     Dosage: 25 MILLIGRAM, Q12H
     Route: 065
  56. TOPICORT [Suspect]
     Active Substance: DESOXIMETASONE
     Dosage: 25 MG
  57. TRAZODONE [Suspect]
     Active Substance: TRAZODONE HYDROCHLORIDE
     Dosage: 1 DOSAGE FORM, QOD
     Route: 065
  58. TRAZODONE [Suspect]
     Active Substance: TRAZODONE HYDROCHLORIDE
     Dosage: 1 DOSAGE FORM, QD
     Route: 065
  59. TRETINOIN [Suspect]
     Active Substance: TRETINOIN
     Dosage: 1 DOSAGE FORM, QOD
     Route: 065
  60. TRETINOIN [Suspect]
     Active Substance: TRETINOIN
     Dosage: UNK
     Route: 065
  61. VITAMIN D3 [Suspect]
     Active Substance: CHOLECALCIFEROL
     Dosage: UNK
     Route: 065
  62. CETIRIZINE [Suspect]
     Active Substance: CETIRIZINE HYDROCHLORIDE
     Dosage: 3 DOSAGE FORM, QD
     Route: 065
  63. CETIRIZINE [Suspect]
     Active Substance: CETIRIZINE HYDROCHLORIDE
     Dosage: UNK
     Route: 048
  64. CHOLECALCIFEROL [Suspect]
     Active Substance: CHOLECALCIFEROL
     Dosage: UNK
     Route: 065
  65. TOPIRAMATE [Suspect]
     Active Substance: TOPIRAMATE
     Indication: Migraine
     Dosage: 25 MILLIGRAM, QOD
     Route: 065
  66. TOPIRAMATE [Suspect]
     Active Substance: TOPIRAMATE
     Dosage: 3 MILLIGRAM, QD
     Route: 065
  67. TOPIRAMATE [Suspect]
     Active Substance: TOPIRAMATE
     Dosage: 25 MILLIGRAM, QD
     Route: 065
  68. PSEUDOEPHEDRINE [Suspect]
     Active Substance: PSEUDOEPHEDRINE
     Dosage: UNK
     Route: 065
  69. PSEUDOEPHEDRINE [Suspect]
     Active Substance: PSEUDOEPHEDRINE
     Dosage: UNK
     Route: 065
  70. MAGNESIUM [Suspect]
     Active Substance: MAGNESIUM
     Dosage: UNK
     Route: 065
  71. PHOSPHORUS [Suspect]
     Active Substance: PHOSPHORUS
     Dosage: UNK
     Route: 065
  72. VITAMIN C [Suspect]
     Active Substance: ASCORBIC ACID
     Dosage: UNK
     Route: 065
  73. PAROXETINE [Suspect]
     Active Substance: PAROXETINE
     Dosage: UNK
     Route: 065
  74. CETIRIZINE HYDROCHLORIDE [Suspect]
     Active Substance: CETIRIZINE HYDROCHLORIDE
     Dosage: UNK
     Route: 048
  75. DOMPERIDONE\PANTOPRAZOLE SODIUM [Suspect]
     Active Substance: DOMPERIDONE\PANTOPRAZOLE SODIUM
     Dosage: 3 DOSAGE FORM
     Route: 065
  76. DOMPERIDONE\PANTOPRAZOLE SODIUM [Suspect]
     Active Substance: DOMPERIDONE\PANTOPRAZOLE SODIUM
     Dosage: 1 DOSAGE FORM, Q8HR
     Route: 065
  77. DOMPERIDONE\PANTOPRAZOLE SODIUM [Suspect]
     Active Substance: DOMPERIDONE\PANTOPRAZOLE SODIUM
     Dosage: 1 DOSAGE FORM, QOD
     Route: 065
  78. CHOLECALCIFEROL [Suspect]
     Active Substance: CHOLECALCIFEROL
     Dosage: UNK
     Route: 065
  79. CALCIUM\CHOLECALCIFEROL\MAGNESIUM [Suspect]
     Active Substance: CALCIUM\CHOLECALCIFEROL\MAGNESIUM
     Dosage: 1.0 DOSAGE FORM, QD
     Route: 065
  80. CALCIUM\CHOLECALCIFEROL\MAGNESIUM [Suspect]
     Active Substance: CALCIUM\CHOLECALCIFEROL\MAGNESIUM
     Dosage: UNK
     Route: 065
  81. ATOMOXETINE HYDROCHLORIDE [Suspect]
     Active Substance: ATOMOXETINE HYDROCHLORIDE
     Indication: Migraine
     Dosage: 1 DOSAGE FORM, QOD
     Route: 065
  82. ATOMOXETINE HYDROCHLORIDE [Suspect]
     Active Substance: ATOMOXETINE HYDROCHLORIDE
     Dosage: 1 DOSAGE FORM, QD
     Route: 065
  83. TRAZODONE HYDROCHLORIDE [Suspect]
     Active Substance: TRAZODONE HYDROCHLORIDE
     Dosage: 1 DF, QD
     Route: 065
  84. DOMPERIDONE\PANTOPRAZOLE SODIUM [Suspect]
     Active Substance: DOMPERIDONE\PANTOPRAZOLE SODIUM
     Dosage: 3 DOSAGE FORM
     Route: 065
  85. DOMPERIDONE\PANTOPRAZOLE SODIUM [Suspect]
     Active Substance: DOMPERIDONE\PANTOPRAZOLE SODIUM
     Dosage: 1 DOSAGE FORM, Q8HR
     Route: 065
  86. DOMPERIDONE\PANTOPRAZOLE SODIUM [Suspect]
     Active Substance: DOMPERIDONE\PANTOPRAZOLE SODIUM
     Dosage: 1 DOSAGE FORM, QOD
     Route: 065
  87. CYCLOBENZAPRINE HYDROCHLORIDE [Suspect]
     Active Substance: CYCLOBENZAPRINE HYDROCHLORIDE
     Dosage: 1 DOSAGE FORM, QOD
     Route: 065
  88. CYCLOBENZAPRINE HYDROCHLORIDE [Suspect]
     Active Substance: CYCLOBENZAPRINE HYDROCHLORIDE
     Dosage: 1 DOSAGE FORM, QOD
     Route: 065
  89. CYCLOBENZAPRINE HYDROCHLORIDE [Suspect]
     Active Substance: CYCLOBENZAPRINE HYDROCHLORIDE
     Dosage: 1 DOSAGE FORM, QD
     Route: 065
  90. CETIRIZINE HYDROCHLORIDE\PSEUDOEPHEDRINE HYDROCHLORIDE [Suspect]
     Active Substance: CETIRIZINE HYDROCHLORIDE\PSEUDOEPHEDRINE HYDROCHLORIDE
     Dosage: 1 DOSAGE FORM, QD
     Route: 065
  91. CETIRIZINE HYDROCHLORIDE\PSEUDOEPHEDRINE HYDROCHLORIDE [Suspect]
     Active Substance: CETIRIZINE HYDROCHLORIDE\PSEUDOEPHEDRINE HYDROCHLORIDE
     Dosage: UNK
     Route: 065
  92. AZELAIC ACID [Suspect]
     Active Substance: AZELAIC ACID
     Dosage: UNK
     Route: 065
  93. DESOXIMETASONE [Suspect]
     Active Substance: DESOXIMETASONE
     Dosage: UNK, Q12H
     Route: 065
  94. DESOXIMETASONE [Suspect]
     Active Substance: DESOXIMETASONE
     Dosage: 25 MILLIGRAM, QD
     Route: 065
  95. DESOXIMETASONE [Suspect]
     Active Substance: DESOXIMETASONE
     Dosage: 2 DF, 1X/DAY
  96. DESOXIMETASONE [Suspect]
     Active Substance: DESOXIMETASONE
     Dosage: UNK
  97. DESOXIMETASONE [Suspect]
     Active Substance: DESOXIMETASONE
     Dosage: 25 MILLIGRAM, BID
     Route: 065
  98. ERENUMAB [Suspect]
     Active Substance: ERENUMAB
     Indication: Migraine
     Dosage: UNK
     Route: 065
  99. VITAMIN D3 [Suspect]
     Active Substance: CHOLECALCIFEROL
     Dosage: UNK
     Route: 065
  100. CALCIUM PANTOTHENATE [Suspect]
     Active Substance: CALCIUM PANTOTHENATE
     Dosage: 1 DOSAGE FORM
     Route: 065
  101. MILNACIPRAN HYDROCHLORIDE [Suspect]
     Active Substance: MILNACIPRAN HYDROCHLORIDE
     Dosage: 1 DOSAGE FORM, QOD
     Route: 065
  102. VITAMINS NOS [Suspect]
     Active Substance: VITAMINS
     Dosage: UNK
     Route: 065
  103. ERENUMAB-AOOE [Suspect]
     Active Substance: ERENUMAB-AOOE
     Indication: Migraine
     Dosage: UNK
     Route: 065
  104. DOMPERIDONE MALEATE [Suspect]
     Active Substance: DOMPERIDONE MALEATE
     Dosage: UNK
     Route: 065
  105. RANITIDINE HYDROCHLORIDE [Suspect]
     Active Substance: RANITIDINE HYDROCHLORIDE
     Dosage: UNK
     Route: 065
  106. VITAMIN D3 [Suspect]
     Active Substance: CHOLECALCIFEROL
     Dosage: UNK
     Route: 065
  107. CALCIUM PANTOTHENATE [Suspect]
     Active Substance: CALCIUM PANTOTHENATE
     Dosage: UNK
     Route: 065
  108. TRICHOLINE CITRATE [Suspect]
     Active Substance: TRICHOLINE CITRATE
     Dosage: UNK
     Route: 065
  109. PYRIDOXINE HYDROCHLORIDE [Suspect]
     Active Substance: PYRIDOXINE HYDROCHLORIDE
     Dosage: UNK
     Route: 065
  110. RIBOFLAVIN [Suspect]
     Active Substance: RIBOFLAVIN
     Dosage: UNK
     Route: 065
  111. THIAMINE HYDROCHLORIDE [Suspect]
     Active Substance: THIAMINE HYDROCHLORIDE
     Dosage: UNK
     Route: 065
  112. PREDNICARBATE [Suspect]
     Active Substance: PREDNICARBATE
     Dosage: UNK
     Route: 065
  113. VITAMIN C [Suspect]
     Active Substance: ASCORBIC ACID
     Dosage: UNK
     Route: 065
  114. CETIRIZINE HYDROCHLORIDE [Suspect]
     Active Substance: CETIRIZINE HYDROCHLORIDE
     Dosage: UNK
     Route: 048
  115. CETIRIZINE HYDROCHLORIDE [Suspect]
     Active Substance: CETIRIZINE HYDROCHLORIDE
     Dosage: UNK
     Route: 065
  116. CETIRIZINE HYDROCHLORIDE [Suspect]
     Active Substance: CETIRIZINE HYDROCHLORIDE
     Dosage: UNK
     Route: 065
  117. MAGNESIUM CARBONATE [Suspect]
     Active Substance: MAGNESIUM CARBONATE
     Dosage: UNK
     Route: 065
  118. PSEUDOEPHEDRINE HYDROCHLORIDE [Suspect]
     Active Substance: PSEUDOEPHEDRINE HYDROCHLORIDE
     Dosage: UNK
     Route: 065

REACTIONS (13)
  - Abdominal pain upper [Unknown]
  - Blepharospasm [Unknown]
  - Drug intolerance [Unknown]
  - Epilepsy [Unknown]
  - Gastrooesophageal reflux disease [Unknown]
  - Hypoaesthesia [Unknown]
  - Memory impairment [Unknown]
  - Migraine [Unknown]
  - Pain [Unknown]
  - Paraesthesia [Unknown]
  - Taste disorder [Unknown]
  - Vomiting [Unknown]
  - Drug ineffective [Unknown]
